FAERS Safety Report 7745400-7 (Version None)
Quarter: 2011Q3

REPORT INFORMATION
  Report Type: 
  Country: None (occurrence: None)
  Receive Date: 20110826
  Receipt Date: 20110812
  Transmission Date: 20111222
  Serious: Yes (Hospitalization)
  Sender: FDA-Public Use
  Company Number: DSA_47443_2011

PATIENT
  Sex: Female

DRUGS (1)
  1. ELIDEL [Suspect]
     Indication: DERMATITIS ATOPIC
     Dosage: ONE APPLICATION DAILY TOPICAL
     Route: 061
     Dates: start: 20100701

REACTIONS (4)
  - GASTRIC DISORDER [None]
  - THROMBOSIS [None]
  - ABSCESS [None]
  - VEIN DISORDER [None]
